FAERS Safety Report 5657249-X (Version None)
Quarter: 2008Q1

REPORT INFORMATION
  Report Type: 
  Country: None (occurrence: None)
  Receive Date: 20080310
  Receipt Date: 20080303
  Transmission Date: 20080703
  Serious: Yes (Death, Hospitalization)
  Sender: FDA-Public Use
  Company Number: FR-BRISTOL-MYERS SQUIBB COMPANY-14001721

PATIENT
  Age: 70 Year
  Sex: Male

DRUGS (6)
  1. ERBITUX [Suspect]
     Indication: NEOPLASM MALIGNANT
     Route: 042
     Dates: start: 20070814
  2. RADIOTHERAPY [Suspect]
     Indication: NEOPLASM MALIGNANT
  3. CORDARONE [Concomitant]
     Route: 048
  4. MOPRAL [Concomitant]
     Route: 048
  5. KARDEGIC [Concomitant]
     Route: 048
  6. TADENAN [Concomitant]
     Route: 048

REACTIONS (5)
  - CARDIAC FAILURE [None]
  - DYSPNOEA [None]
  - ISCHAEMIC STROKE [None]
  - OEDEMA PERIPHERAL [None]
  - RENAL FAILURE ACUTE [None]
